FAERS Safety Report 16600382 (Version 1)
Quarter: 2019Q3

REPORT INFORMATION
  Report Type: Spontaneous
  Country: FR (occurrence: FR)
  Receive Date: 20190719
  Receipt Date: 20190719
  Transmission Date: 20191004
  Serious: Yes (Life-Threatening)
  Sender: FDA-Public Use
  Company Number: FR-TEVA-2019-FR-1078812

PATIENT
  Age: 48 Year
  Sex: Male
  Weight: 72 kg

DRUGS (2)
  1. AMOXICILLINE [Suspect]
     Active Substance: AMOXICILLIN
     Indication: TOOTH INFECTION
     Dosage: 1GM PER TOTAL
     Route: 048
     Dates: start: 20171007
  2. IBUPROFENE [Concomitant]
     Active Substance: IBUPROFEN
     Indication: TOOTH INFECTION
     Dosage: 1DOSAGE FORM PER TOTAL
     Route: 048
     Dates: start: 20171007

REACTIONS (1)
  - Anaphylactic shock [Recovered/Resolved]

NARRATIVE: CASE EVENT DATE: 20171007
